FAERS Safety Report 4538277-4 (Version None)
Quarter: 2004Q4

REPORT INFORMATION
  Report Type: 
  Country: None (occurrence: None)
  Receive Date: 20041221
  Receipt Date: 20041207
  Transmission Date: 20050328
  Serious: Yes (Hospitalization, Other)
  Sender: FDA-Public Use
  Company Number: 2004-DE-06171DE

PATIENT
  Age: 50 Year
  Sex: Female

DRUGS (3)
  1. SIFROL (PRAMIPEXOLE DIHYDROCHLORIDE) [Suspect]
     Indication: PARKINSON'S DISEASE
     Dosage: 1.05 MG (0.35 MG. 3 IN 1 D), PO
     Route: 048
  2. MADOPAR (MADOPAR) [Concomitant]
  3. COMTESS   (ENTACAPONE) [Concomitant]

REACTIONS (3)
  - ARTHRALGIA [None]
  - ERYTHEMA [None]
  - JOINT SWELLING [None]
